FAERS Safety Report 5205890-0 (Version None)
Quarter: 2006Q4

REPORT INFORMATION
  Report Type: 
  Country: None (occurrence: None)
  Receive Date: 20061027
  Receipt Date: 20060816
  Transmission Date: 20070319
  Serious: No
  Sender: FDA-Public Use
  Company Number: 012432

PATIENT
  Sex: Male

DRUGS (2)
  1. PRIALT [Suspect]
     Indication: NEURALGIA
     Dosage: ONCE/HOUR, INTRATHECAL
     Route: 037
  2. MEMANTINE HCL [Suspect]
     Indication: NEURALGIA

REACTIONS (2)
  - DRUG INTERACTION [None]
  - DYSURIA [None]
